FAERS Safety Report 5853899-6 (Version None)
Quarter: 2008Q3

REPORT INFORMATION
  Report Type: 
  Country: None (occurrence: None)
  Receive Date: 20080822
  Receipt Date: 20080818
  Transmission Date: 20090109
  Serious: Yes (Death)
  Sender: FDA-Public Use
  Company Number: A0743072A

PATIENT
  Age: 57 Year
  Sex: Male

DRUGS (6)
  1. ZOFRAN [Suspect]
     Indication: PROPHYLAXIS OF NAUSEA AND VOMITING
     Dosage: 32MG WEEKLY
     Route: 042
     Dates: start: 20070801, end: 20080501
  2. DECADRON SRC [Concomitant]
  3. TAGAMET [Concomitant]
  4. BENADRYL [Concomitant]
  5. CARBOPLATIN [Concomitant]
  6. TAXOL [Concomitant]

REACTIONS (1)
  - LUNG NEOPLASM MALIGNANT [None]
